FAERS Safety Report 8502431-7 (Version None)
Quarter: 2012Q3

REPORT INFORMATION
  Report Type: 
  Country: None (occurrence: None)
  Receive Date: 20120711
  Receipt Date: 20120706
  Transmission Date: 20120928
  Serious: Yes (Other)
  Sender: FDA-Public Use
  Company Number: PHHY2012MX058848

PATIENT
  Sex: Female

DRUGS (4)
  1. CYMBALTA [Concomitant]
     Dosage: 1 DF, DAILY
     Dates: start: 20120101
  2. ZOLEDRONOC ACID [Suspect]
     Indication: OSTEOPOROSIS
     Dosage: 5 MG PER 100 ML ONCE A YEAR
     Route: 042
  3. OMEPRAZOLE [Concomitant]
     Indication: BURN OF INTERNAL ORGANS
     Dosage: 1 DF, DAILY
     Dates: start: 19950101
  4. LEVOTHYROXINE SODIUM [Concomitant]
     Indication: BURN OF INTERNAL ORGANS
     Dosage: 1 DF, DAILY
     Dates: start: 19950101

REACTIONS (9)
  - GALLBLADDER PAIN [None]
  - PAIN IN EXTREMITY [None]
  - BACK PAIN [None]
  - NAUSEA [None]
  - PAIN [None]
  - GAIT DISTURBANCE [None]
  - ARTHRALGIA [None]
  - MUSCULOSKELETAL CHEST PAIN [None]
  - DYSSTASIA [None]
